FAERS Safety Report 8337674 (Version 2)
Quarter: 2012Q4

REPORT INFORMATION
  Report Type: 
  Country: DE (occurrence: FR)
  Receive Date: 20120116
  Receipt Date: 20121003
  Transmission Date: 20130627
  Serious: Yes (Hospitalization)
  Sender: FDA-Public Use
  Company Number: FR-BRISTOL-MYERS SQUIBB COMPANY-16340358

PATIENT
  Age: 80 Year
  Sex: Female

DRUGS (9)
  1. COAPROVEL TABS [Suspect]
     Indication: HYPERTENSION
     Route: 048
  2. METFORMIN HCL [Suspect]
     Indication: TYPE 2 DIABETES MELLITUS
     Route: 048
  3. CORDARONE [Suspect]
     Indication: ATRIAL FIBRILLATION
     Route: 048
     Dates: end: 20111224
  4. CRESTOR [Suspect]
     Route: 048
  5. PREVISCAN [Suspect]
     Indication: ATRIAL FIBRILLATION
     Route: 048
  6. PREVISCAN [Suspect]
     Indication: ATRIAL FIBRILLATION
     Route: 048
  7. DETENSIEL [Suspect]
     Indication: HYPERTENSION
     Dosage: Tab
     Route: 048
  8. NOVONORM [Suspect]
     Indication: TYPE 2 DIABETES MELLITUS
     Route: 048
  9. LEVEMIR [Suspect]
     Indication: TYPE 2 DIABETES MELLITUS
     Route: 058

REACTIONS (1)
  - Interstitial lung disease [Not Recovered/Not Resolved]
